FAERS Safety Report 15516792 (Version 1)
Quarter: 2018Q4

REPORT INFORMATION
  Report Type: Report from Study
  Country: JP (occurrence: JP)
  Receive Date: 20181017
  Receipt Date: 20181017
  Transmission Date: 20190205
  Serious: Yes (Death, Other)
  Sender: FDA-Public Use
  Company Number: JP-ACTELION-A-CH2018-177862

PATIENT
  Age: 70 Year
  Sex: Female

DRUGS (7)
  1. CARVEDILOL. [Concomitant]
     Active Substance: CARVEDILOL
  2. OXYGEN. [Concomitant]
     Active Substance: OXYGEN
  3. FUROSEMIDE. [Concomitant]
     Active Substance: FUROSEMIDE
  4. THYRADIN [Concomitant]
     Active Substance: LEVOTHYROXINE
  5. UPTRAVI [Concomitant]
     Active Substance: SELEXIPAG
  6. TOLVAPTAN [Concomitant]
     Active Substance: TOLVAPTAN
  7. OPSUMIT [Suspect]
     Active Substance: MACITENTAN
     Indication: PULMONARY ARTERIAL HYPERTENSION
     Dosage: 5 MG, QD
     Route: 048
     Dates: start: 20180429, end: 20180809

REACTIONS (10)
  - Protein total abnormal [Fatal]
  - Left ventricular dysfunction [Not Recovered/Not Resolved]
  - Respiratory disorder [Fatal]
  - Multiple organ dysfunction syndrome [Fatal]
  - Pleural effusion [Fatal]
  - Drug ineffective [Unknown]
  - Lupus myocarditis [Fatal]
  - Platelet count decreased [Not Recovered/Not Resolved]
  - Pleurisy [Fatal]
  - Acidosis [Fatal]

NARRATIVE: CASE EVENT DATE: 20180625
